FAERS Safety Report 7335827-X (Version None)
Quarter: 2011Q1

REPORT INFORMATION
  Report Type: 
  Country: None (occurrence: None)
  Receive Date: 20110307
  Receipt Date: 20110224
  Transmission Date: 20110831
  Serious: Yes (Life-Threatening, Hospitalization, Disabling)
  Sender: FDA-Public Use
  Company Number: US-MERCK-1102USA03325

PATIENT
  Sex: Male

DRUGS (2)
  1. ISENTRESS [Suspect]
     Indication: HIV INFECTION
     Route: 048
     Dates: start: 20100801
  2. TRUVADA [Suspect]
     Route: 065

REACTIONS (6)
  - VIRAL LOAD [None]
  - DEHYDRATION [None]
  - RENAL FAILURE ACUTE [None]
  - DYSPHAGIA [None]
  - OROPHARYNGEAL CANDIDIASIS [None]
  - LYMPHOCYTE COUNT DECREASED [None]
